FAERS Safety Report 14289269 (Version 1)
Quarter: 2017Q4

REPORT INFORMATION
  Report Type: Spontaneous
  Country: US (occurrence: US)
  Receive Date: 20171214
  Receipt Date: 20171214
  Transmission Date: 20180321
  Serious: Yes (Disabling)
  Sender: FDA-Public Use
  Company Number: None

PATIENT
  Age: 38 Year
  Sex: Female
  Weight: 87.75 kg

DRUGS (1)
  1. GADAVIST [Suspect]
     Active Substance: GADOBUTROL

REACTIONS (42)
  - Scleral disorder [None]
  - Axillary pain [None]
  - Chest discomfort [None]
  - Dyspareunia [None]
  - Fatigue [None]
  - Lymph node pain [None]
  - Feeling cold [None]
  - Salt craving [None]
  - Skin disorder [None]
  - Oral discomfort [None]
  - Pain [None]
  - Vulvovaginal dryness [None]
  - Breast pain [None]
  - Abdominal pain [None]
  - Pelvic pain [None]
  - Cognitive disorder [None]
  - Libido decreased [None]
  - Skin texture abnormal [None]
  - Scar [None]
  - Thyroid mass [None]
  - Facial paralysis [None]
  - Nervous system disorder [None]
  - Endocrine disorder [None]
  - Joint swelling [None]
  - Nail disorder [None]
  - Glossodynia [None]
  - Alopecia [None]
  - Depression [None]
  - Premature ageing [None]
  - Vaginal disorder [None]
  - Muscle tightness [None]
  - Intraocular pressure increased [None]
  - Visual impairment [None]
  - Muscle atrophy [None]
  - Disturbance in attention [None]
  - Memory impairment [None]
  - Eyelid oedema [None]
  - Tension headache [None]
  - Dysgeusia [None]
  - Arthralgia [None]
  - Muscular weakness [None]
  - Somnolence [None]

NARRATIVE: CASE EVENT DATE: 20170328
